FAERS Safety Report 6964100-4 (Version None)
Quarter: 2010Q3

REPORT INFORMATION
  Report Type: 
  Country: None (occurrence: None)
  Receive Date: 20100902
  Receipt Date: 20100823
  Transmission Date: 20110219
  Serious: Yes (Hospitalization)
  Sender: FDA-Public Use
  Company Number: NL-MYLANLABS-2010S1015268

PATIENT
  Age: 78 Year
  Sex: Female

DRUGS (4)
  1. HYDROCHLOROTHIAZIDE [Suspect]
     Indication: HYPERTENSION
     Route: 065
  2. NIFEDIPINE [Concomitant]
     Indication: HYPERTENSION
     Route: 065
  3. ATENOLOL [Concomitant]
     Indication: HYPERTENSION
     Route: 065
  4. NITROFURANTOIN [Concomitant]
     Indication: URINARY TRACT INFECTION
     Route: 065

REACTIONS (4)
  - CONFUSIONAL STATE [None]
  - DELIRIUM [None]
  - HYPONATRAEMIA [None]
  - VOMITING [None]
